FAERS Safety Report 16076854 (Version 2)
Quarter: 2020Q3

REPORT INFORMATION
  Report Type: Other
  Country: US (occurrence: US)
  Receive Date: 20190315
  Receipt Date: 20200722
  Transmission Date: 20201102
  Serious: Yes (Hospitalization, Other)
  Sender: FDA-Public Use
  Company Number: US-ROCHE-2280286

PATIENT
  Age: 71 Year
  Sex: Female
  Weight: 90.8 kg

DRUGS (21)
  1. REPATHA [Concomitant]
     Active Substance: EVOLOCUMAB
     Indication: LOW DENSITY LIPOPROTEIN INCREASED
     Dosage: ONGOING : YES
     Dates: start: 202004
  2. DONEPEZIL. [Concomitant]
     Active Substance: DONEPEZIL
     Dosage: ONE IN THE EVENING ; ONGOING : YES
  3. VITAMIN C [Concomitant]
     Active Substance: ASCORBIC ACID
     Dosage: STARTED SINCE 35 YEARS OLD ; ONGOING : YES
  4. ALLERGY MEDICATION [Concomitant]
     Active Substance: DIPHENHYDRAMINE HYDROCHLORIDE
     Indication: SEASONAL ALLERGY
     Dosage: STARTED 10?15 YEARS AGO ; ONGOING : YES
  5. FUROSEMIDE. [Concomitant]
     Active Substance: FUROSEMIDE
     Indication: FLUID RETENTION
     Dosage: STARTED IN 1990^S ; ONGOING : YES
  6. COENZYME Q10 [Concomitant]
     Active Substance: DIETARY SUPPLEMENT\UBIDECARENONE
     Dosage: ONGOING : YES
  7. NITROFURANTIN [Concomitant]
     Active Substance: NITROFURANTOIN
     Indication: URINARY TRACT INFECTION
     Dosage: MONO CAP; AT BEDTIME ; ONGOING : YES
     Dates: start: 2017
  8. TIZANIDINE. [Concomitant]
     Active Substance: TIZANIDINE
     Indication: MUSCLE SPASMS
     Dosage: STARTED IN EARLY 2000S ; ONGOING : YES
  9. IRON [Concomitant]
     Active Substance: IRON
     Indication: ANAEMIA
     Dosage: STARTED 2?2.5 YEARS AGO ; ONGOING : YES
  10. RED YEAST RICE [Concomitant]
     Active Substance: DIETARY SUPPLEMENT
     Dosage: ONGOING : YES
  11. FOSAMAX [Concomitant]
     Active Substance: ALENDRONATE SODIUM
     Indication: MULTIPLE FRACTURES
     Dosage: ONGOING : YES
  12. BIOTIN [Concomitant]
     Active Substance: BIOTIN
     Dosage: ONGOING : YES
  13. OCREVUS [Suspect]
     Active Substance: OCRELIZUMAB
     Indication: PRIMARY PROGRESSIVE MULTIPLE SCLEROSIS
     Dosage: ONGOING:UNKNOWN?NEXT INFUSION: 07/NOV/2018
     Route: 065
     Dates: start: 20180516
  14. AMPYRA [Concomitant]
     Active Substance: DALFAMPRIDINE
     Dosage: ONGOING:YES
  15. CARBAMAZEPINE. [Concomitant]
     Active Substance: CARBAMAZEPINE
     Dosage: STARTED BETWEEN 1992 AND 1993 ; ONGOING : YES
  16. BABY ASPIRIN [Concomitant]
     Active Substance: ASPIRIN
     Dosage: ONGOING : YES
  17. OCREVUS [Suspect]
     Active Substance: OCRELIZUMAB
     Indication: RELAPSING MULTIPLE SCLEROSIS
  18. SERTRALINE [Concomitant]
     Active Substance: SERTRALINE HYDROCHLORIDE
     Indication: DEPRESSION
     Dosage: ONGOING : YES
     Dates: start: 2015
  19. POTASSIUM [Concomitant]
     Active Substance: POTASSIUM
     Dosage: STARTED AT 37 YEARS OF AGE ; ONGOING : YES
  20. BACLOFEN. [Concomitant]
     Active Substance: BACLOFEN
     Indication: MUSCLE SPASMS
     Dosage: ONGOING : YES
     Dates: start: 202007
  21. LEVOTHYROXINE. [Concomitant]
     Active Substance: LEVOTHYROXINE
     Indication: HYPOTHYROIDISM
     Dosage: ONGOING : YES
     Dates: start: 1983

REACTIONS (6)
  - Osteomyelitis [Recovered/Resolved]
  - Decubitus ulcer [Recovering/Resolving]
  - Hypertension [Recovered/Resolved]
  - Insomnia [Recovered/Resolved]
  - Rash [Not Recovered/Not Resolved]
  - Pneumonia [Unknown]

NARRATIVE: CASE EVENT DATE: 201902
